FAERS Safety Report 8766738 (Version 1)
Quarter: 2012Q4

REPORT INFORMATION
  Report Type: 
  Country: PH (occurrence: PH)
  Receive Date: 20120904
  Receipt Date: 20120904
  Transmission Date: 20130627
  Serious: Yes (Other)
  Sender: FDA-Public Use
  Company Number: PH-BRISTOL-MYERS SQUIBB COMPANY-16903312

PATIENT

DRUGS (1)
  1. ONGLYZA TABS [Suspect]
     Indication: TYPE 2 DIABETES MELLITUS

REACTIONS (1)
  - Jaundice cholestatic [Unknown]
